FAERS Safety Report 18566511 (Version 2)
Quarter: 2020Q4

REPORT INFORMATION
  Report Type: Spontaneous
  Country: CH (occurrence: CH)
  Receive Date: 20201201
  Receipt Date: 20201224
  Transmission Date: 20210114
  Serious: Yes (Life-Threatening, Hospitalization, Disabling)
  Sender: FDA-Public Use
  Company Number: CH-009507513-2011CHE015678

PATIENT
  Age: 34 Year
  Sex: Female

DRUGS (46)
  1. TIENAM [Suspect]
     Active Substance: CILASTATIN SODIUM\IMIPENEM
     Dosage: 500 MILLIGRAM
     Dates: start: 20201023, end: 20201026
  2. BACTRIM [Suspect]
     Active Substance: SULFAMETHOXAZOLE\TRIMETHOPRIM
     Dosage: 160 MILLIGRAM
     Route: 041
     Dates: start: 20201006, end: 20201019
  3. BACTRIM [Suspect]
     Active Substance: SULFAMETHOXAZOLE\TRIMETHOPRIM
     Dosage: 160 MILLIGRAM
     Route: 048
     Dates: start: 20201019, end: 20201027
  4. PERFALGAN [Suspect]
     Active Substance: ACETAMINOPHEN
     Dosage: IF NECESSARY
     Route: 041
     Dates: start: 20201027
  5. HEPARIN [Concomitant]
     Active Substance: HEPARIN SODIUM
     Dates: start: 20201009
  6. PASPERTIN [Concomitant]
     Dates: start: 20201008
  7. PROGRAF [Suspect]
     Active Substance: TACROLIMUS
     Dosage: 1.3 MILLIGRAM
     Route: 041
     Dates: start: 20201015, end: 20201026
  8. DISTRANEURIN [Suspect]
     Active Substance: CLOMETHIAZOLE
     Dosage: 192 MILLIGRAM
     Route: 048
     Dates: start: 20201102
  9. LEVOFLOXACIN. [Suspect]
     Active Substance: LEVOFLOXACIN
     Dosage: 500 MILLIGRAM, QD
     Dates: start: 20201205
  10. NOVORAPID [Concomitant]
     Active Substance: INSULIN ASPART
     Dates: start: 20201009
  11. LASIX [Suspect]
     Active Substance: FUROSEMIDE
     Dosage: 20 MILLIGRAM
     Dates: start: 20201012, end: 20201016
  12. CEFEPIME [Suspect]
     Active Substance: CEFEPIME HYDROCHLORIDE
     Dosage: 2 MILLIGRAM
     Dates: start: 20201106, end: 20201108
  13. NEXIUM MUPS [Suspect]
     Active Substance: ESOMEPRAZOLE
     Dates: start: 20201021
  14. PROGRAF [Suspect]
     Active Substance: TACROLIMUS
     Dosage: 1 MILLIGRAM
     Route: 048
     Dates: start: 20201029, end: 20201102
  15. PERFALGAN [Suspect]
     Active Substance: ACETAMINOPHEN
     Dosage: IF NECESSARY
     Route: 048
     Dates: start: 20201006, end: 20201027
  16. CLARITHROMYCIN. [Suspect]
     Active Substance: CLARITHROMYCIN
     Dosage: 250 MILLIGRAM, QD
     Dates: start: 20201202, end: 20201204
  17. WELLVONE [Suspect]
     Active Substance: ATOVAQUONE
     Dosage: 1.5 GRAM, QD
     Dates: start: 202011
  18. FENTANYL. [Concomitant]
     Active Substance: FENTANYL
     Dates: start: 20201010, end: 20201028
  19. PROGRAF [Suspect]
     Active Substance: TACROLIMUS
     Dosage: 2 MILLIGRAM
     Route: 048
     Dates: start: 20201102, end: 20201105
  20. PROGRAF [Suspect]
     Active Substance: TACROLIMUS
     Dosage: 2.5 MILLIGRAM
     Route: 048
     Dates: start: 20201105
  21. PREGABALIN. [Concomitant]
     Active Substance: PREGABALIN
     Dates: start: 20201104
  22. TIORFAN [Concomitant]
     Active Substance: RACECADOTRIL
     Dates: start: 20201010, end: 20201015
  23. PROGRAF [Suspect]
     Active Substance: TACROLIMUS
     Dosage: 1.5 MILLIGRAM
     Route: 041
     Dates: start: 20201005, end: 20201015
  24. PROGRAF [Suspect]
     Active Substance: TACROLIMUS
     Dosage: 1 MILLIGRAM
     Route: 041
     Dates: start: 20201026, end: 20201029
  25. ONDANSETRON [Suspect]
     Active Substance: ONDANSETRON
     Route: 041
     Dates: start: 20201008, end: 20201019
  26. LEVOFLOXACIN. [Suspect]
     Active Substance: LEVOFLOXACIN
     Dosage: 500 MILLIGRAM, QD
     Dates: start: 20201121, end: 20201121
  27. AZACTAM [Suspect]
     Active Substance: AZTREONAM
     Dosage: 4X/D MAX ; AS NECESSARY
     Dates: start: 202011
  28. QUETIAPINE FUMARATE. [Suspect]
     Active Substance: QUETIAPINE FUMARATE
     Dosage: 3/D MAX ; AS NECESSARY
     Dates: start: 202011
  29. URSOFALK [Concomitant]
     Active Substance: URSODIOL
     Dates: start: 20201007
  30. TIENAM [Suspect]
     Active Substance: CILASTATIN SODIUM\IMIPENEM
     Dosage: 500 MILLIGRAM
     Dates: start: 20201108
  31. EMEND [Suspect]
     Active Substance: APREPITANT
     Dosage: 125MG/72H80MG/72H80MG/72H ; CYCLICAL
     Route: 048
     Dates: start: 20200929, end: 20201019
  32. LASIX [Suspect]
     Active Substance: FUROSEMIDE
     Dosage: IN TOTAL
     Dates: start: 20201011, end: 20201011
  33. CEFEPIME [Suspect]
     Active Substance: CEFEPIME HYDROCHLORIDE
     Dosage: 2 MILLIGRAM
     Dates: start: 20201008, end: 20201017
  34. VANCOMYCIN [Suspect]
     Active Substance: VANCOMYCIN
     Dosage: 1500 MILLIGRAM
     Dates: start: 20201011, end: 20201017
  35. VANCOMYCIN [Suspect]
     Active Substance: VANCOMYCIN
     Dosage: 1000 MILLIGRAM
     Dates: start: 20201009, end: 20201011
  36. OSPEN (PENICILLIN V BENZATHINE) [Suspect]
     Active Substance: PENICILLIN V BENZATHINE
     Dosage: (110*6.[IU])
     Dates: start: 20201027, end: 20201105
  37. NYSTATIN. [Suspect]
     Active Substance: NYSTATIN
     Dates: start: 20200929
  38. NEXIUM [Suspect]
     Active Substance: ESOMEPRAZOLE MAGNESIUM
     Dosage: 40 MILLIGRAM
     Route: 041
     Dates: start: 20201006, end: 20201020
  39. LEVOFLOXACIN. [Suspect]
     Active Substance: LEVOFLOXACIN
     Dosage: 500 UNK
     Dates: start: 20201201, end: 20201201
  40. INDERAL [Suspect]
     Active Substance: PROPRANOLOL HYDROCHLORIDE
     Dosage: 10 MILLIGRAM, QD
     Route: 048
     Dates: start: 202011, end: 20201204
  41. TIENAM [Suspect]
     Active Substance: CILASTATIN SODIUM\IMIPENEM
     Dosage: 500 MILLIGRAM
     Dates: start: 20201017, end: 20201021
  42. EMEND [Suspect]
     Active Substance: APREPITANT
     Dosage: 125MG/72H80MG/72H80MG/72H ; CYCLICAL
     Route: 048
     Dates: start: 20200928, end: 20201019
  43. FLUCONAZOLE. [Suspect]
     Active Substance: FLUCONAZOLE
     Dates: start: 20201002, end: 20201020
  44. PERFALGAN [Suspect]
     Active Substance: ACETAMINOPHEN
     Dosage: 1 GRAM
     Route: 048
     Dates: start: 20200924, end: 20201006
  45. GANCICLOVIR. [Suspect]
     Active Substance: GANCICLOVIR
     Dosage: 300 MILLIGRAM
     Route: 042
     Dates: start: 202011, end: 20201204
  46. ANIDULAFUNGIN [Concomitant]
     Active Substance: ANIDULAFUNGIN
     Dates: start: 20201027

REACTIONS (4)
  - Rash papular [Recovered/Resolved]
  - Toxic epidermal necrolysis [Recovering/Resolving]
  - Toxic epidermal necrolysis [Recovered/Resolved]
  - Dermatitis bullous [Recovered/Resolved]

NARRATIVE: CASE EVENT DATE: 20201008
